FAERS Safety Report 25738225 (Version 1)
Quarter: 2025Q3

REPORT INFORMATION
  Report Type: Spontaneous
  Country: US (occurrence: US)
  Receive Date: 20250829
  Receipt Date: 20250829
  Transmission Date: 20251020
  Serious: Yes (Other)
  Sender: GRIFOLS
  Company Number: US-IGSA-BIG0037497

PATIENT
  Age: 15 Year
  Sex: Male

DRUGS (3)
  1. GAMUNEX-C [Suspect]
     Active Substance: HUMAN IMMUNOGLOBULIN G
     Indication: Encephalitis
     Dosage: 140 GRAM, Q.6WK.
     Route: 042
     Dates: start: 20250310
  2. GAMUNEX-C [Suspect]
     Active Substance: HUMAN IMMUNOGLOBULIN G
     Indication: Encephalomyelitis
     Dosage: 140 GRAM, Q.6WK.
     Route: 042
     Dates: start: 20250310
  3. GAMUNEX-C [Suspect]
     Active Substance: HUMAN IMMUNOGLOBULIN G
     Indication: Off label use

REACTIONS (3)
  - Urticaria [Unknown]
  - Pyrexia [Unknown]
  - Seizure [Unknown]

NARRATIVE: CASE EVENT DATE: 20250401
